FAERS Safety Report 7976857-4 (Version None)
Quarter: 2011Q4

REPORT INFORMATION
  Report Type: 
  Country: None (occurrence: None)
  Receive Date: 20111213
  Receipt Date: 20111104
  Transmission Date: 20120403
  Serious: No
  Sender: FDA-Public Use
  Company Number: US-AMGEN-USASP2011058065

PATIENT
  Age: 77 Year
  Sex: Female

DRUGS (2)
  1. ENBREL [Suspect]
     Indication: RHEUMATOID ARTHRITIS
     Dosage: 50 MG, QWK
     Dates: start: 20000101
  2. METHOTREXATE [Concomitant]

REACTIONS (6)
  - VISION BLURRED [None]
  - DIZZINESS [None]
  - VITREOUS FLOATERS [None]
  - LACRIMATION INCREASED [None]
  - HEADACHE [None]
  - EYE PAIN [None]
